FAERS Safety Report 4462988-2 (Version None)
Quarter: 2004Q3

REPORT INFORMATION
  Report Type: 
  Country: None (occurrence: None)
  Receive Date: 20040930
  Receipt Date: 20040915
  Transmission Date: 20050211
  Serious: Yes (Other)
  Sender: FDA-Public Use
  Company Number: 200419182GDDC

PATIENT
  Age: 60 Year
  Sex: Male

DRUGS (17)
  1. KETEK [Suspect]
     Indication: PNEUMONIA
     Route: 048
     Dates: start: 20040909, end: 20040919
  2. COUMADIN [Suspect]
     Indication: COAGULOPATHY
     Dosage: DOSE: UNK
     Route: 048
  3. FUROSEMIDE [Concomitant]
     Route: 048
  4. ACETYL SALICYLIC ACID [Concomitant]
     Indication: PROPHYLAXIS
     Route: 048
  5. COMBIVENT [Concomitant]
     Dosage: DOSE: 3 INHALATIONS
     Route: 055
  6. BRIMONIDINE 0.2% [Concomitant]
     Indication: INTRAOCULAR PRESSURE INCREASED
     Dosage: DOSE: 1 GTT/EYE
     Route: 047
  7. ACTOS [Concomitant]
     Indication: DIABETES MELLITUS
     Route: 048
  8. NOVOLIN GE [Concomitant]
     Indication: DIABETES MELLITUS
     Route: 058
  9. ADVAIR DISKUS 100/50 [Concomitant]
     Dosage: DOSE: 50UG/500UG
     Route: 055
  10. NITROLINGUAL PUMPSPRAY [Concomitant]
     Indication: ANGINA PECTORIS
     Route: 060
  11. ATARAX [Concomitant]
     Indication: PRURITUS
     Route: 048
  12. COLACE [Concomitant]
     Indication: CONSTIPATION
     Route: 048
  13. SENOKOT [Concomitant]
     Indication: CONSTIPATION
     Route: 048
  14. LIPITOR [Concomitant]
     Indication: HYPERCHOLESTEROLAEMIA
     Route: 048
  15. NOVOLIN GE [Concomitant]
     Route: 058
  16. ALTACE [Concomitant]
     Route: 048
  17. TYLENOL [Concomitant]
     Dosage: DOSE: UNK
     Route: 048

REACTIONS (3)
  - COAGULOPATHY [None]
  - DRUG INTERACTION [None]
  - INTERNATIONAL NORMALISED RATIO ABNORMAL [None]
